FAERS Safety Report 8782384 (Version 2)
Quarter: 2012Q4

REPORT INFORMATION
  Report Type: 
  Country: KR (occurrence: KR)
  Receive Date: 20120913
  Receipt Date: 20121009
  Transmission Date: 20130627
  Serious: Yes (Hospitalization)
  Sender: FDA-Public Use
  Company Number: KR-ELI_LILLY_AND_COMPANY-KR201209001001

PATIENT
  Age: 64 Year
  Sex: Female

DRUGS (2)
  1. HUMALOG 25% LISPRO, 75% NPL [Suspect]
     Indication: TYPE 2 DIABETES MELLITUS
     Dosage: 20 u, each morning
     Dates: start: 20120801
  2. HUMALOG 25% LISPRO, 75% NPL [Suspect]
     Dosage: 18 u, each evening
     Dates: start: 20120801

REACTIONS (2)
  - Dyspnoea [Recovered/Resolved]
  - Headache [Recovered/Resolved]
